FAERS Safety Report 8893245 (Version 1)
Quarter: 2012Q4

REPORT INFORMATION
  Report Type: 
  Country: US (occurrence: US)
  Receive Date: 20121107
  Receipt Date: 20121107
  Transmission Date: 20130627
  Serious: No
  Sender: FDA-Public Use
  Company Number: US-AMGEN-USASP2011052290

PATIENT
  Age: 45 Year
  Sex: Male
  Weight: 88.44 kg

DRUGS (9)
  1. ENBREL [Suspect]
     Dosage: 50 mg, qwk
  2. FLUTICASONE [Concomitant]
     Dosage: 50 mug, UNK
  3. ZYRTEC [Concomitant]
     Dosage: 5 mg, UNK
  4. LISINOPRIL [Concomitant]
     Dosage: 2.5 mg, UNK
  5. DOXYCYCLINE HYCLATE [Concomitant]
     Dosage: 50 mg, UNK
  6. ADVAIR HFA [Concomitant]
  7. VITAMIN D3 [Concomitant]
     Dosage: 400 IU, UNK
  8. FISH OIL [Concomitant]
  9. LEVOXYL [Concomitant]
     Dosage: 25 mug, UNK

REACTIONS (5)
  - Injection site infection [Unknown]
  - Injection site reaction [Unknown]
  - Injection site erythema [Unknown]
  - Injection site swelling [Unknown]
  - Injection site pain [Unknown]
